FAERS Safety Report 9314349 (Version 1)
Quarter: 2013Q2

REPORT INFORMATION
  Report Type: Spontaneous
  Country: US (occurrence: US)
  Receive Date: 20130529
  Receipt Date: 20130529
  Transmission Date: 20140414
  Serious: No
  Sender: FDA-Public Use
  Company Number: US-TEVA-408356USA

PATIENT
  Age: 42 Year
  Sex: Female
  Weight: 49.03 kg

DRUGS (3)
  1. NUVIGIL [Suspect]
     Indication: FATIGUE
     Route: 048
     Dates: start: 20130523
  2. PROZAC [Concomitant]
     Indication: PAIN
  3. PROZAC [Concomitant]
     Indication: MIGRAINE

REACTIONS (2)
  - Paraesthesia [Unknown]
  - Off label use [Unknown]
